FAERS Safety Report 10822990 (Version 1)
Quarter: 2015Q1

REPORT INFORMATION
  Report Type: Spontaneous
  Country: US (occurrence: None)
  Receive Date: 20150218
  Receipt Date: 20150218
  Transmission Date: 20150721
  Serious: Yes (Other)
  Sender: FDA-Public Use
  Company Number: None

PATIENT
  Age: 53 Year
  Sex: Female

DRUGS (1)
  1. ORENCIA [Suspect]
     Active Substance: ABATACEPT
     Dosage: STRENGTH: 125MG, DOSE FORM: INJECTABLE, ROUTE: SUBCUTANEOUS 057
     Route: 058

REACTIONS (1)
  - Skin infection [None]

NARRATIVE: CASE EVENT DATE: 20150213
